FAERS Safety Report 10740670 (Version 6)
Quarter: 2015Q2

REPORT INFORMATION
  Report Type: Spontaneous
  Country: US (occurrence: US)
  Receive Date: 20150127
  Receipt Date: 20150505
  Transmission Date: 20150821
  Serious: Yes (Hospitalization)
  Sender: FDA-Public Use
  Company Number: US-UNITED THERAPEUTICS-UNT-2015-000687

PATIENT
  Age: 52 Year
  Sex: Female
  Weight: 70.3 kg

DRUGS (10)
  1. REMODULIN [Suspect]
     Active Substance: TREPROSTINIL
     Dosage: 0.0895 ?G/KG, CONTINUING
     Route: 058
     Dates: start: 20131024
  2. REMODULIN [Suspect]
     Active Substance: TREPROSTINIL
     Dosage: 0.0895 ?G/KG, CONTINUING
     Route: 058
     Dates: start: 20130924
  3. REMODULIN [Suspect]
     Active Substance: TREPROSTINIL
     Dosage: 0.0895 ?G/KG, CONTINUING
     Route: 058
     Dates: start: 20120924
  4. REVATIO [Concomitant]
     Active Substance: SILDENAFIL CITRATE
     Indication: PRODUCT USED FOR UNKNOWN INDICATION
  5. TRACLEER [Concomitant]
     Active Substance: BOSENTAN\BOSENTAN MONOHYDRATE
     Indication: PRODUCT USED FOR UNKNOWN INDICATION
  6. REMODULIN [Suspect]
     Active Substance: TREPROSTINIL
     Indication: PULMONARY ARTERIAL HYPERTENSION
     Dosage: 0.0805 ?G/KG, CONTINUING
     Route: 058
     Dates: start: 20120620
  7. REMODULIN [Suspect]
     Active Substance: TREPROSTINIL
     Dosage: 0.0895 ?G/KG, CONTINUING
     Route: 058
     Dates: start: 20120924
  8. REMODULIN [Suspect]
     Active Substance: TREPROSTINIL
     Dosage: 0.0895 ?G/KG, CONTINUING
     Route: 058
     Dates: start: 20120924
  9. COUMADIN [Concomitant]
     Active Substance: WARFARIN SODIUM
     Indication: PRODUCT USED FOR UNKNOWN INDICATION
  10. ASPIRIN                            /00002701/ [Concomitant]
     Active Substance: ASPIRIN
     Indication: PRODUCT USED FOR UNKNOWN INDICATION

REACTIONS (9)
  - Nasopharyngitis [Unknown]
  - Infusion site haematoma [Unknown]
  - Cough [Unknown]
  - Full blood count decreased [Unknown]
  - Dyspnoea [Unknown]
  - Anaemia [Unknown]
  - Dysphonia [Unknown]
  - Seasonal allergy [Unknown]
  - Infusion site haemorrhage [Unknown]

NARRATIVE: CASE EVENT DATE: 201501
